FAERS Safety Report 6465635-3 (Version None)
Quarter: 2009Q4

REPORT INFORMATION
  Report Type: 
  Country: None (occurrence: None)
  Receive Date: 20091124
  Receipt Date: 20091110
  Transmission Date: 20100525
  Serious: Yes (Other)
  Sender: FDA-Public Use
  Company Number: 8054570

PATIENT
  Age: 86 Year
  Sex: Male

DRUGS (8)
  1. PREDNISOLONE [Suspect]
  2. AZATHIOPRINE [Suspect]
     Dates: start: 20090121
  3. ALLOPURINOL [Suspect]
     Dates: start: 20080101, end: 20090318
  4. ALLOPURINOL [Suspect]
  5. EPREX [Suspect]
     Indication: NEPHROGENIC ANAEMIA
  6. NEORECORMON [Suspect]
     Indication: NEPHROGENIC ANAEMIA
     Dosage: SC
     Route: 058
     Dates: start: 20080101
  7. RITUXIMAB [Suspect]
     Dates: start: 20080101
  8. TRIMETHOPRIM [Suspect]
     Dates: start: 20090624, end: 20091001

REACTIONS (8)
  - BONE MARROW FAILURE [None]
  - DRUG INEFFECTIVE [None]
  - HAEMODIALYSIS [None]
  - HYPERPARATHYROIDISM [None]
  - IRON DEFICIENCY [None]
  - LOWER RESPIRATORY TRACT INFECTION [None]
  - RENAL OSTEODYSTROPHY [None]
  - WEGENER'S GRANULOMATOSIS [None]
